FAERS Safety Report 12544109 (Version 2)
Quarter: 2016Q3

REPORT INFORMATION
  Report Type: Spontaneous
  Country: US (occurrence: US)
  Receive Date: 20160711
  Receipt Date: 20160824
  Transmission Date: 20161109
  Serious: Yes (Life-Threatening, Hospitalization, Other)
  Sender: FDA-Public Use
  Company Number: US-GLAXOSMITHKLINE-US2016097815

PATIENT
  Age: 25 Year
  Sex: Female

DRUGS (8)
  1. NICOTINE. [Suspect]
     Active Substance: NICOTINE
  2. CLONAZEPAM. [Suspect]
     Active Substance: CLONAZEPAM
     Route: 048
  3. HEROIN [Suspect]
     Active Substance: DIACETYLMORPHINE
     Route: 048
  4. GABAPENTIN. [Suspect]
     Active Substance: GABAPENTIN
  5. CLONAZEPAM. [Suspect]
     Active Substance: CLONAZEPAM
     Route: 048
  6. CITALOPRAM [Suspect]
     Active Substance: CITALOPRAM HYDROBROMIDE
  7. HEROIN [Suspect]
     Active Substance: DIACETYLMORPHINE
     Route: 048
  8. TRAZODONE [Suspect]
     Active Substance: TRAZODONE HYDROCHLORIDE

REACTIONS (5)
  - Respiratory failure [Recovering/Resolving]
  - Hypoglycaemia [Unknown]
  - Hypotension [Recovering/Resolving]
  - Overdose [Unknown]
  - Myocardial stunning [Recovering/Resolving]
